FAERS Safety Report 16825157 (Version 1)
Quarter: 2019Q3

REPORT INFORMATION
  Report Type: Spontaneous
  Country: BR (occurrence: BR)
  Receive Date: 20190919
  Receipt Date: 20190919
  Transmission Date: 20191005
  Serious: Yes (Other)
  Sender: FDA-Public Use
  Company Number: PHHY2019BR214576

PATIENT
  Age: 42 Year
  Sex: Female

DRUGS (1)
  1. IMATINIB. [Suspect]
     Active Substance: IMATINIB MESYLATE
     Indication: CHRONIC MYELOID LEUKAEMIA
     Dosage: 400 MG, QD
     Route: 065
     Dates: start: 20151110

REACTIONS (11)
  - Uveitis [Unknown]
  - Anaemia [Unknown]
  - Bradycardia [Unknown]
  - Thrombocytopenia [Unknown]
  - Cytogenetic analysis abnormal [Unknown]
  - Toxoplasmosis [Unknown]
  - Sinusitis [Unknown]
  - Bronchitis [Unknown]
  - Tooth infection [Unknown]
  - Face oedema [Unknown]
  - Pneumonia [Unknown]

NARRATIVE: CASE EVENT DATE: 20160211
